FAERS Safety Report 20671938 (Version 2)
Quarter: 2022Q2

REPORT INFORMATION
  Report Type: Spontaneous
  Country: US (occurrence: US)
  Receive Date: 20220405
  Receipt Date: 20220602
  Transmission Date: 20220721
  Serious: No
  Sender: FDA-Public Use
  Company Number: US-GLENMARK PHARMACEUTICALS-2022GMK070486

PATIENT

DRUGS (2)
  1. MUPIROCIN [Suspect]
     Active Substance: MUPIROCIN
     Indication: Nasal discomfort
     Dosage: UNK, BID
     Route: 061
  2. MUPIROCIN [Suspect]
     Active Substance: MUPIROCIN
     Indication: Scab

REACTIONS (2)
  - Product use in unapproved indication [Unknown]
  - Product physical consistency issue [Unknown]
